FAERS Safety Report 7403484-X (Version None)
Quarter: 2011Q2

REPORT INFORMATION
  Report Type: 
  Country: None (occurrence: None)
  Receive Date: 20110408
  Receipt Date: 20110331
  Transmission Date: 20111010
  Serious: Yes (Hospitalization, Other)
  Sender: FDA-Public Use
  Company Number: US-SANOFI-AVENTIS-2011SA020504

PATIENT
  Age: 84 Year
  Sex: Female

DRUGS (3)
  1. LANTUS [Suspect]
     Indication: TYPE 2 DIABETES MELLITUS
     Dosage: DOSE:20 UNIT(S)
     Route: 058
  2. OPTICLICK [Suspect]
  3. GLIPIZIDE [Concomitant]

REACTIONS (4)
  - SPINAL FRACTURE [None]
  - PELVIC FRACTURE [None]
  - BLOOD GLUCOSE INCREASED [None]
  - FALL [None]
